FAERS Safety Report 8030480-4 (Version None)
Quarter: 2012Q1

REPORT INFORMATION
  Report Type: 
  Country: None (occurrence: None)
  Receive Date: 20120109
  Receipt Date: 20111228
  Transmission Date: 20120608
  Serious: Yes (Hospitalization)
  Sender: FDA-Public Use
  Company Number: US-UCBSA-048519

PATIENT
  Age: 53 Year
  Sex: Female
  Weight: 65 kg

DRUGS (20)
  1. ENABLEX [Concomitant]
     Indication: HYPERTONIC BLADDER
     Dates: start: 20110717
  2. ENABLEX [Concomitant]
     Dates: start: 20101105, end: 20110623
  3. CERTOLIZUMAB PEGOL [Suspect]
     Indication: RHEUMATOID ARTHRITIS
     Dosage: NUMBER OF DOSES RECEIVED: 16
     Route: 058
     Dates: start: 20110707
  4. METHOTREXATE [Concomitant]
     Indication: RHEUMATOID ARTHRITIS
     Dates: start: 20091104
  5. NORCO [Concomitant]
     Dosage: 10/325 MG
     Dates: start: 20100617, end: 20110902
  6. TRAMADOL HCL [Concomitant]
     Indication: BACK PAIN
     Dates: start: 20100903
  7. FLONASE [Concomitant]
     Indication: HYPERSENSITIVITY
     Dates: start: 20110624
  8. NORCO [Concomitant]
     Indication: RHEUMATOID ARTHRITIS
     Dosage: 10/325 MG
     Dates: start: 20110927
  9. ALPRAZOLAM [Concomitant]
     Indication: ANXIETY
     Dates: start: 20100525
  10. NORVASC [Concomitant]
     Indication: ANXIETY
     Dates: start: 20090727
  11. NEXIUM [Concomitant]
     Indication: CHEST DISCOMFORT
     Dates: start: 20110805
  12. CALTRATE+D [Concomitant]
     Indication: MEDICAL DIET
     Dates: start: 20091201
  13. CYMBALTA [Concomitant]
     Indication: DEPRESSION
     Dates: start: 20101105
  14. NORCO [Concomitant]
     Indication: TOOTHACHE
     Dosage: 10/325 MG
     Dates: start: 20110927
  15. NORCO [Concomitant]
     Dosage: 10/325 MG
     Dates: start: 20110903, end: 20110926
  16. NORCO [Concomitant]
     Dosage: 10/325 MG
     Dates: start: 20110903, end: 20110926
  17. NORCO [Concomitant]
     Dosage: 10/325 MG
     Dates: start: 20100617, end: 20110902
  18. PLAQUENIL SULPHATE [Concomitant]
     Indication: RHEUMATOID ARTHRITIS
     Dates: start: 20090727
  19. FOLIC ACID [Concomitant]
     Indication: SUPPLEMENTATION THERAPY
     Dates: start: 20100917
  20. DULCOLAX [Concomitant]
     Indication: CONSTIPATION
     Dates: start: 20110301

REACTIONS (3)
  - HYPOAESTHESIA [None]
  - CHEST PAIN [None]
  - HELICOBACTER INFECTION [None]
